FAERS Safety Report 4527884-0 (Version None)
Quarter: 2004Q4

REPORT INFORMATION
  Report Type: 
  Country: None (occurrence: None)
  Receive Date: 20041123
  Receipt Date: 20040325
  Transmission Date: 20050328
  Serious: Yes (Other)
  Sender: FDA-Public Use
  Company Number: HQWYE143126MAR04

PATIENT
  Age: 41 Year
  Sex: Female

DRUGS (2)
  1. ZOSYN [Suspect]
     Indication: SEPSIS
     Dosage: 3.375 G 1X PER 6 HR, INTRAVENOUS
     Route: 042
     Dates: start: 20040324, end: 20040325
  2. GENTAMICIN SULFATE [Concomitant]

REACTIONS (1)
  - INFECTED SKIN ULCER [None]
